FAERS Safety Report 19027338 (Version 1)
Quarter: 2021Q1

REPORT INFORMATION
  Report Type: Spontaneous
  Country: CN (occurrence: CN)
  Receive Date: 20210318
  Receipt Date: 20210318
  Transmission Date: 20210420
  Serious: Yes (Other)
  Sender: FDA-Public Use
  Company Number: CN-PFIZER INC-2021264247

PATIENT
  Age: 6 Year
  Sex: Female
  Weight: 22 kg

DRUGS (10)
  1. SODIUM CHLORIDE. [Suspect]
     Active Substance: SODIUM CHLORIDE
     Indication: ACUTE LYMPHOCYTIC LEUKAEMIA
     Dosage: 3 ML, 1X/DAY
     Route: 037
     Dates: start: 20210131, end: 20210131
  2. SODIUM CHLORIDE. [Suspect]
     Active Substance: SODIUM CHLORIDE
     Dosage: 20 ML, 1X/DAY
     Route: 042
     Dates: start: 20210207, end: 20210207
  3. GLUCOSE [Suspect]
     Active Substance: DEXTROSE
     Indication: ACUTE LYMPHOCYTIC LEUKAEMIA
     Dosage: 250 ML, 2X/DAY(ONCE EVERY 12 HOURS)
     Route: 041
     Dates: start: 20210131, end: 20210202
  4. CYTOSAR [Suspect]
     Active Substance: CYTARABINE
     Indication: ACUTE LYMPHOCYTIC LEUKAEMIA
     Dosage: 1.740 G, 2X/DAY (ONCE EVERY 12 HOURS)
     Route: 041
     Dates: start: 20210131, end: 20210202
  5. METHOTREXATE. [Suspect]
     Active Substance: METHOTREXATE
     Indication: ACUTE LYMPHOCYTIC LEUKAEMIA
     Dosage: 12.5 MG, 1X/DAY
     Route: 037
     Dates: start: 20210131, end: 20210131
  6. VINCRISTINE SULFATE. [Suspect]
     Active Substance: VINCRISTINE SULFATE
     Dosage: 1.3 MG, 1X/DAY
     Route: 042
     Dates: start: 20210207, end: 20210207
  7. CYTOSAR [Suspect]
     Active Substance: CYTARABINE
     Dosage: 0.035 G, 1X/DAY
     Route: 037
     Dates: start: 20210131, end: 20210131
  8. VINCRISTINE SULFATE. [Suspect]
     Active Substance: VINCRISTINE SULFATE
     Indication: ACUTE LYMPHOCYTIC LEUKAEMIA
     Dosage: 1.3 MG, 1X/DAY
     Route: 042
     Dates: start: 20210131, end: 20210131
  9. SODIUM CHLORIDE. [Suspect]
     Active Substance: SODIUM CHLORIDE
     Indication: ACUTE LYMPHOCYTIC LEUKAEMIA
     Dosage: 20 ML, 1X/DAY
     Route: 042
     Dates: start: 20210131, end: 20210131
  10. DEXAMETHASONE SODIUM PHOSPHATE. [Concomitant]
     Active Substance: DEXAMETHASONE SODIUM PHOSPHATE
     Dosage: 2.5 MG, 2X/DAY
     Route: 037
     Dates: start: 20210131, end: 20210131

REACTIONS (3)
  - Palpitations [Unknown]
  - Dyspnoea [Unknown]
  - Myelosuppression [Recovering/Resolving]

NARRATIVE: CASE EVENT DATE: 20210207
